FAERS Safety Report 21059755 (Version 6)
Quarter: 2023Q4

REPORT INFORMATION
  Report Type: Spontaneous
  Country: PT (occurrence: PT)
  Receive Date: 20220708
  Receipt Date: 20231130
  Transmission Date: 20240110
  Serious: Yes (Other)
  Sender: FDA-Public Use
  Company Number: PT-Zentiva-2022-ZT-005330

PATIENT
  Age: 47 Year
  Sex: Female

DRUGS (3)
  1. SERTRALINE [Suspect]
     Active Substance: SERTRALINE HYDROCHLORIDE
     Indication: Dysarthria
     Dosage: 100 MILLIGRAM, QD (200 MG/DAY: 50+50+100)
     Route: 048
  2. SERTRALINE [Suspect]
     Active Substance: SERTRALINE HYDROCHLORIDE
     Indication: Gait disturbance
     Dosage: 50 MILLIGRAM, Q2D (200 MG/DAY: 50+50+100)
     Route: 048
  3. SERTRALINE [Suspect]
     Active Substance: SERTRALINE HYDROCHLORIDE
     Dosage: 100 MILLIGRAM (0.5+0.5+1)
     Route: 048

REACTIONS (10)
  - Conversion disorder [Unknown]
  - Inappropriate affect [Unknown]
  - Anxiety [Unknown]
  - Insomnia [Unknown]
  - Gait disturbance [Unknown]
  - Irritability [Unknown]
  - Iatrogenic injury [Unknown]
  - Drug ineffective [Unknown]
  - Drug dose titration not performed [Unknown]
  - Off label use [Unknown]

NARRATIVE: CASE EVENT DATE: 20200901
